FAERS Safety Report 8470285-3 (Version None)
Quarter: 2012Q2

REPORT INFORMATION
  Report Type: 
  Country: None (occurrence: None)
  Receive Date: 20120627
  Receipt Date: 20120620
  Transmission Date: 20120825
  Serious: Yes (Other)
  Sender: FDA-Public Use
  Company Number: CH-US-EMD SERONO, INC.-7135064

PATIENT
  Sex: Female

DRUGS (5)
  1. AVONEX [Suspect]
     Indication: MULTIPLE SCLEROSIS
     Route: 030
     Dates: start: 20040601, end: 20120318
  2. REBIF [Suspect]
     Indication: MULTIPLE SCLEROSIS
     Route: 058
     Dates: start: 20030101, end: 20040501
  3. IBUPROFEN TABLETS [Concomitant]
     Indication: INFLUENZA LIKE ILLNESS
     Route: 048
     Dates: start: 20040601, end: 20120318
  4. LIORESAL [Concomitant]
     Indication: MUSCLE SPASTICITY
     Route: 048
     Dates: start: 20120101, end: 20120321
  5. LYRICA [Concomitant]
     Indication: NEURALGIA
     Route: 048
     Dates: start: 20120215, end: 20120321

REACTIONS (2)
  - LYMPHOCYTOSIS [None]
  - CHRONIC LYMPHOCYTIC LEUKAEMIA [None]
